FAERS Safety Report 8005033-4 (Version None)
Quarter: 2011Q4

REPORT INFORMATION
  Report Type: 
  Country: None (occurrence: None)
  Receive Date: 20111223
  Receipt Date: 20111215
  Transmission Date: 20120403
  Serious: Yes (Hospitalization, Other)
  Sender: FDA-Public Use
  Company Number: JP-NOVOPROD-330136

PATIENT

DRUGS (22)
  1. OLOPATADINE HCL [Concomitant]
     Indication: PUSTULAR PSORIASIS
     Dosage: 10 MG, QD
     Route: 048
  2. MAGNESIUM SULFATE [Concomitant]
     Indication: CONSTIPATION
     Dosage: 990 MG, QD
     Route: 048
  3. ALLOPURINOL [Concomitant]
     Indication: HYPERURICAEMIA
     Dosage: 100 MG, QD
     Route: 048
  4. SLOW-K [Concomitant]
     Indication: HYPOKALAEMIA
     Dosage: 600 MG, QD
     Route: 048
  5. ONON [Concomitant]
     Indication: ASTHMA
     Dosage: 450 MG, QD
     Route: 048
  6. MUCOSTA [Concomitant]
     Indication: CHRONIC OBSTRUCTIVE PULMONARY DISEASE
     Dosage: 300 MG, QD
     Route: 048
  7. LANSOPRAZOLE [Concomitant]
     Indication: GASTRIC ULCER
     Dosage: 15 MG, QD
     Route: 048
  8. EPINASTINE HYDROCHLORIDE [Concomitant]
     Indication: PUSTULAR PSORIASIS
     Dosage: 20 MG, QD
     Route: 048
  9. BEZATOL SR [Concomitant]
     Indication: HYPERLIPIDAEMIA
     Dosage: 400 MG, QD
     Route: 048
  10. LANTUS [Suspect]
     Indication: TYPE 2 DIABETES MELLITUS
     Dosage: 10 IU, QD
     Route: 058
  11. PREDNISOLONE [Concomitant]
     Indication: DERMATOMYOSITIS
     Dosage: 5 MG, QD
     Route: 048
  12. UNIPHYLLA [Concomitant]
     Indication: ASTHMA
     Dosage: 200 MG, QD
     Route: 048
  13. LASIX [Concomitant]
     Indication: CARDIAC FAILURE CHRONIC
     Dosage: 200 MG, QD
     Route: 048
  14. ROHYPNOL [Concomitant]
     Indication: INSOMNIA
     Dosage: 1 MG, QD
     Route: 048
  15. FLUTICASONE PROPIONATE [Concomitant]
     Indication: ASTHMA
     Dosage: 400 A?G, QD
     Route: 055
  16. NOVORAPID CHU FLEXPEN [Suspect]
     Indication: TYPE 2 DIABETES MELLITUS
     Dosage: 28 U, QD
     Route: 058
     Dates: start: 20040101, end: 20100812
  17. SIGMART [Concomitant]
     Indication: ASTHMA
     Dosage: 15 MG, QD
     Route: 048
  18. ASPIRIN [Concomitant]
     Indication: ANGINA PECTORIS
     Dosage: 100 MG, QD
     Route: 048
  19. CLARITHROMYCIN [Concomitant]
     Dosage: 400 MG, QD
     Route: 048
  20. PREDNISOLONE [Concomitant]
     Indication: DERMATOMYOSITIS
     Dosage: 1 MG, QD
     Route: 048
  21. LOXOPROFEN [Concomitant]
     Indication: OSTEOARTHRITIS
     Dosage: 120 MG, QD
     Route: 048
  22. TIGASON                            /00530101/ [Concomitant]
     Indication: PUSTULAR PSORIASIS
     Dosage: 10 MG, QD
     Route: 048

REACTIONS (4)
  - BLOOD GLUCOSE FLUCTUATION [None]
  - HYPERINSULINAEMIA [None]
  - HYPOGLYCAEMIC UNCONSCIOUSNESS [None]
  - ANTI-INSULIN ANTIBODY POSITIVE [None]
